FAERS Safety Report 21126354 (Version 1)
Quarter: 2022Q3

REPORT INFORMATION
  Report Type: Spontaneous
  Country: US (occurrence: None)
  Receive Date: 20220725
  Receipt Date: 20220725
  Transmission Date: 20221027
  Serious: No
  Sender: FDA-Public Use
  Company Number: None

PATIENT
  Age: 80 Year
  Sex: Female

DRUGS (1)
  1. COSENTYX [Suspect]
     Active Substance: SECUKINUMAB
     Indication: Psoriasis
     Dosage: OTHER QUANTITY : 300MG (2 PENS);?FREQUENCY : MONTHLY;?
     Route: 058
     Dates: start: 202203

REACTIONS (4)
  - Infection [None]
  - Dyspepsia [None]
  - Eating disorder [None]
  - Diarrhoea [None]
